FAERS Safety Report 10083382 (Version 2)
Quarter: 2014Q2

REPORT INFORMATION
  Report Type: Spontaneous
  Country: US (occurrence: US)
  Receive Date: 20140417
  Receipt Date: 20140520
  Transmission Date: 20141212
  Serious: Yes (Other)
  Sender: FDA-Public Use
  Company Number: US-AMGEN-USASP2014026460

PATIENT
  Age: 62 Year
  Sex: Female
  Weight: 53.52 kg

DRUGS (1)
  1. PROLIA [Suspect]
     Indication: OSTEOPOROSIS POSTMENOPAUSAL
     Dosage: 60 MG, UNK
     Route: 058
     Dates: start: 20131216

REACTIONS (10)
  - Abscess oral [Unknown]
  - Gingival abscess [Unknown]
  - Osteomyelitis [Unknown]
  - Tooth disorder [Unknown]
  - Nervousness [Unknown]
  - Mental impairment [Unknown]
  - Inflammation [Unknown]
  - Pain [Unknown]
  - Gingivitis [Recovering/Resolving]
  - Insomnia [Unknown]
